FAERS Safety Report 6103780-2 (Version None)
Quarter: 2009Q1

REPORT INFORMATION
  Report Type: 
  Country: None (occurrence: None)
  Receive Date: 20090305
  Receipt Date: 20090302
  Transmission Date: 20090719
  Serious: Yes (Death, Life-Threatening, Hospitalization)
  Sender: FDA-Public Use
  Company Number: DE-ASTRAZENECA-2009PK00709

PATIENT
  Age: 34272 Day
  Sex: Female
  Weight: 63.7 kg

DRUGS (11)
  1. BELOC MITE [Suspect]
     Route: 048
     Dates: start: 20061216
  2. HALDOL [Interacting]
     Route: 048
     Dates: start: 20061219, end: 20070109
  3. HALDOL [Interacting]
     Route: 048
     Dates: start: 20070110, end: 20070111
  4. HALDOL [Interacting]
     Route: 048
     Dates: start: 20070112
  5. DIAZEPAM [Interacting]
     Route: 048
     Dates: start: 20070110
  6. PANTOZOL [Concomitant]
     Route: 048
     Dates: start: 20061101
  7. L-THYOXIN [Concomitant]
     Route: 048
     Dates: start: 20061101
  8. ENALAPRIL MALEATE [Concomitant]
     Route: 048
     Dates: start: 20061101
  9. ASPIRIN [Concomitant]
     Route: 048
     Dates: start: 20061101
  10. NULYTELY [Concomitant]
     Route: 048
     Dates: start: 20061101
  11. NOVALGIN [Concomitant]
     Route: 048
     Dates: start: 20061217

REACTIONS (2)
  - CARDIAC ARREST [None]
  - DRUG INTERACTION [None]
